FAERS Safety Report 9990177 (Version 1)
Quarter: 2013Q4

REPORT INFORMATION
  Report Type: Spontaneous
  Country: US (occurrence: None)
  Receive Date: 20131120
  Receipt Date: 20131120
  Transmission Date: 20140711
  Serious: Yes (Other)
  Sender: FDA-Public Use
  Company Number: 2009S1006257

PATIENT
  Age: 71 Year
  Sex: Female

DRUGS (6)
  1. FLEET PHOSPHO-SODA ORAL SALINE LAXATIVE, GINGER-LEMON FLAVOR [Suspect]
     Indication: COLONOSCOPY
     Dosage: 1 IN 24 HOURS
     Route: 048
     Dates: start: 200602, end: 200602
  2. ZESTRIL (LISINOPRIL) [Concomitant]
  3. PREMARIN (ESTROGENS CONJUGATED) [Concomitant]
  4. LEXAPRO (ESCITALOPRAM OXALATE) [Concomitant]
  5. LORAZEPAM (LORAZEPAM) [Concomitant]
  6. METOPROLOL (METOPROLOL) [Concomitant]

REACTIONS (2)
  - Renal tubular necrosis [None]
  - Acute phosphate nephropathy [None]
